FAERS Safety Report 4746552-3 (Version None)
Quarter: 2005Q3

REPORT INFORMATION
  Report Type: 
  Country: None (occurrence: None)
  Receive Date: 20050816
  Receipt Date: 20050816
  Transmission Date: 20060218
  Serious: Yes (Hospitalization, Disabling)
  Sender: FDA-Public Use
  Company Number: None

PATIENT
  Age: 80 Year
  Sex: Female
  Weight: 57.1532 kg

DRUGS (13)
  1. ZOFRAN [Suspect]
     Indication: NAUSEA
     Dosage: 1 TABLET ONCE OR TWICE A DAY ORAL 047
     Route: 048
     Dates: start: 20050128, end: 20050512
  2. ACTONEL [Concomitant]
  3. METHOTREXATE [Concomitant]
  4. COZAAR [Concomitant]
  5. SYNTHROID [Concomitant]
  6. PREDNISONE [Concomitant]
  7. TAGAMET [Concomitant]
  8. FOLIC ACID [Concomitant]
  9. HTCZ [Concomitant]
  10. MIACALCIN SPRAY [Concomitant]
  11. PERCOCET [Concomitant]
  12. CALCIUM GLUCONATE [Concomitant]
  13. K-DUR 10 [Concomitant]

REACTIONS (7)
  - ABDOMINAL DISTENSION [None]
  - ABDOMINAL PAIN [None]
  - CONDITION AGGRAVATED [None]
  - CONSTIPATION [None]
  - IRRITABLE BOWEL SYNDROME [None]
  - NAUSEA [None]
  - THERAPY NON-RESPONDER [None]
